FAERS Safety Report 12679643 (Version 9)
Quarter: 2017Q1

REPORT INFORMATION
  Report Type: Spontaneous
  Country: US (occurrence: US)
  Receive Date: 20160824
  Receipt Date: 20170124
  Transmission Date: 20170428
  Serious: Yes (Hospitalization, Other)
  Sender: FDA-Public Use
  Company Number: US-PFIZER INC-2016398105

PATIENT
  Age: 74 Year
  Sex: Male
  Weight: 85 kg

DRUGS (11)
  1. ISOBID [Concomitant]
     Indication: CHEST PAIN
     Dosage: 60 MG, 1X/DAY
     Route: 048
     Dates: start: 201601
  2. ZYRTEC [Concomitant]
     Active Substance: CETIRIZINE HYDROCHLORIDE
     Dosage: UNK
     Dates: start: 2015
  3. SUTENT [Suspect]
     Active Substance: SUNITINIB MALATE
     Indication: METASTATIC RENAL CELL CARCINOMA
     Dosage: 50 MG, CYCLIC [ONE DAY; 28 DAYS ON/14 DAYS OFF]
     Route: 048
     Dates: start: 20160812, end: 20160901
  4. SUTENT [Suspect]
     Active Substance: SUNITINIB MALATE
     Dosage: 50 MG, CYCLIC [2 WEEKS ON/1 WEEK OFF]
     Dates: start: 20160914
  5. PRILOSEC [Concomitant]
     Active Substance: OMEPRAZOLE MAGNESIUM
     Indication: GASTROOESOPHAGEAL REFLUX DISEASE
     Dosage: 20 MG, 1X/DAY
     Route: 048
     Dates: start: 2007
  6. PROCHLORPERAZINE. [Concomitant]
     Active Substance: PROCHLORPERAZINE
     Indication: NAUSEA
     Dosage: 10 MG, AS NEEDED (1 Q 6 HRS )
     Dates: start: 20160804
  7. ZANTAC [Concomitant]
     Active Substance: RANITIDINE HYDROCHLORIDE
     Indication: GASTROOESOPHAGEAL REFLUX DISEASE
     Dosage: 150 MG, 1X/DAY
     Route: 048
     Dates: start: 2007
  8. LIPITOR [Concomitant]
     Active Substance: ATORVASTATIN CALCIUM
     Indication: BLOOD CHOLESTEROL ABNORMAL
     Dosage: 40 MG, 1X/DAY
     Route: 048
     Dates: start: 2010
  9. TAMSULOSIN [Concomitant]
     Active Substance: TAMSULOSIN
     Indication: BENIGN PROSTATIC HYPERPLASIA
     Dosage: 0.4 MG, 1X/DAY
     Route: 048
     Dates: start: 2016
  10. TENORMIN [Concomitant]
     Active Substance: ATENOLOL
     Indication: HYPERTENSION
     Dosage: 50 MG, 2X/DAY
     Route: 048
     Dates: start: 2010
  11. FLOMAX [Concomitant]
     Active Substance: TAMSULOSIN HYDROCHLORIDE
     Dosage: UNK

REACTIONS (21)
  - Stomatitis [Recovering/Resolving]
  - Diarrhoea [Not Recovered/Not Resolved]
  - Oral pain [Recovering/Resolving]
  - Poor quality sleep [Unknown]
  - Haemorrhoids [Unknown]
  - Headache [Unknown]
  - Contusion [Not Recovered/Not Resolved]
  - Facial pain [Recovering/Resolving]
  - Asthenia [Not Recovered/Not Resolved]
  - Eye pain [Not Recovered/Not Resolved]
  - Decreased appetite [Not Recovered/Not Resolved]
  - Testicular pain [Recovering/Resolving]
  - Eating disorder [Not Recovered/Not Resolved]
  - Haematochezia [Unknown]
  - Dysgeusia [Not Recovered/Not Resolved]
  - Pain in extremity [Recovering/Resolving]
  - Confusional state [Not Recovered/Not Resolved]
  - Pain of skin [Not Recovered/Not Resolved]
  - Fatigue [Not Recovered/Not Resolved]
  - Erythema of eyelid [Recovering/Resolving]
  - Cough [Recovering/Resolving]

NARRATIVE: CASE EVENT DATE: 20160819
